FAERS Safety Report 7450841-1 (Version None)
Quarter: 2011Q2

REPORT INFORMATION
  Report Type: 
  Country: None (occurrence: None)
  Receive Date: 20110502
  Receipt Date: 20110422
  Transmission Date: 20111010
  Serious: Yes (Life-Threatening, Other)
  Sender: FDA-Public Use
  Company Number: JP-CELGENEUS-087-21880-10112252

PATIENT
  Sex: Female
  Weight: 58.7 kg

DRUGS (22)
  1. DALACIN [Concomitant]
     Indication: PROPHYLAXIS
     Dosage: 12 CAPSULE
     Route: 048
     Dates: start: 20101002, end: 20101010
  2. REVLIMID [Suspect]
     Indication: MULTIPLE MYELOMA
     Dosage: 25 MILLIGRAM
     Route: 048
     Dates: start: 20100904, end: 20100908
  3. MORPHES [Concomitant]
     Indication: MULTIPLE MYELOMA
     Dosage: 20 MILLIGRAM
     Route: 048
     Dates: start: 20100927
  4. SAWACILLIN [Concomitant]
     Indication: PROPHYLAXIS
     Dosage: 6 CAPSULE
     Route: 048
     Dates: start: 20101002, end: 20101010
  5. SAWACILLIN [Concomitant]
     Indication: MEDIASTINAL ABSCESS
  6. ASPIRIN [Concomitant]
     Indication: PROPHYLAXIS
     Dosage: 81 MILLIGRAM
     Route: 048
     Dates: start: 20100904, end: 20100908
  7. MAGLAX [Concomitant]
     Indication: PROPHYLAXIS
     Dosage: 3 TABLET
     Route: 048
     Dates: start: 20100210
  8. FLOMAX [Concomitant]
     Indication: PAIN
     Route: 065
     Dates: start: 20100906
  9. REVLIMID [Suspect]
     Dosage: 25 MILLIGRAM
     Route: 048
     Dates: start: 20101005, end: 20101010
  10. REVLIMID [Suspect]
     Dosage: 10 MILLIGRAM
     Route: 048
     Dates: start: 20101019, end: 20101025
  11. REVLIMID [Suspect]
     Dosage: 15 MILLIGRAM
     Route: 048
     Dates: start: 20101026, end: 20101108
  12. REVLIMID [Suspect]
     Dosage: 25 MILLIGRAM
     Route: 048
     Dates: start: 20101221, end: 20110104
  13. BAKTAR [Concomitant]
     Indication: PROPHYLAXIS
     Dosage: 2 TABLET
     Route: 048
     Dates: start: 20100210
  14. REVLIMID [Suspect]
     Dosage: 15 MILLIGRAM
     Route: 048
     Dates: start: 20101116, end: 20101129
  15. PANTETHINE [Concomitant]
     Indication: PROPHYLAXIS
     Dosage: 600 MILLIGRAM
     Route: 048
     Dates: start: 20100210
  16. GASTER D [Concomitant]
     Indication: PROPHYLAXIS
     Dosage: 20 MILLIGRAM
     Route: 048
     Dates: start: 20100210
  17. REVLIMID [Suspect]
     Dosage: 20 MILLIGRAM
     Route: 048
     Dates: start: 20101130, end: 20101206
  18. LENADEX [Suspect]
     Indication: MULTIPLE MYELOMA
     Dosage: 40 MILLIGRAM
     Route: 048
     Dates: start: 20100904, end: 20100908
  19. MUCOSTA [Concomitant]
     Indication: PROPHYLAXIS
     Dosage: 300 MILLIGRAM
     Route: 048
     Dates: start: 20100210
  20. NORVASC [Concomitant]
     Indication: HYPERTENSION
     Dosage: 5 MILLIGRAM
     Route: 048
     Dates: start: 20100210
  21. REVLIMID [Suspect]
     Dosage: 20 MILLIGRAM
     Route: 048
     Dates: start: 20101214, end: 20101220
  22. DALACIN [Concomitant]
     Indication: MEDIASTINAL ABSCESS

REACTIONS (4)
  - DRUG ERUPTION [None]
  - NEUTROPHIL COUNT DECREASED [None]
  - MEDIASTINAL ABSCESS [None]
  - PLATELET COUNT DECREASED [None]
